FAERS Safety Report 11290788 (Version 1)
Quarter: 2015Q3

REPORT INFORMATION
  Report Type: Spontaneous
  Country: US (occurrence: None)
  Receive Date: 20150720
  Receipt Date: 20150720
  Transmission Date: 20151125
  Serious: Yes (Other)
  Sender: FDA-Public Use
  Company Number: None

PATIENT
  Age: 90 Year
  Sex: Female

DRUGS (1)
  1. FORTEO [Suspect]
     Active Substance: TERIPARATIDE
     Indication: SENILE OSTEOPOROSIS
     Dosage: JULY 2014-ONLY TOOK 10 DAYS?20 MCG DAILY SQ
     Route: 058
     Dates: start: 201407

REACTIONS (4)
  - Rash erythematous [None]
  - Rash pruritic [None]
  - Acne [None]
  - Swelling face [None]

NARRATIVE: CASE EVENT DATE: 20150717
